FAERS Safety Report 12345960 (Version 4)
Quarter: 2016Q4

REPORT INFORMATION
  Report Type: Spontaneous
  Country: US (occurrence: US)
  Receive Date: 20160509
  Receipt Date: 20161006
  Transmission Date: 20170207
  Serious: Yes (Other)
  Sender: FDA-Public Use
  Company Number: US-009507513-1605USA000474

PATIENT
  Age: 68 Year
  Sex: Male
  Weight: 107.48 kg

DRUGS (1)
  1. JANUMET XR [Suspect]
     Active Substance: METFORMIN HYDROCHLORIDE\SITAGLIPTIN PHOSPHATE
     Indication: DIABETES MELLITUS
     Dosage: 50-1000 MG, QD
     Route: 048
     Dates: start: 20140822, end: 20160426

REACTIONS (18)
  - Benign prostatic hyperplasia [Unknown]
  - Lymphadenopathy [Unknown]
  - Migraine [Unknown]
  - Hyperlipidaemia [Unknown]
  - Tinea infection [Unknown]
  - Hepatic steatosis [Unknown]
  - Cholelithiasis [Recovered/Resolved]
  - Pancreatitis acute [Recovered/Resolved]
  - Deafness [Unknown]
  - Eczema [Unknown]
  - Obesity [Unknown]
  - Colon adenoma [Unknown]
  - Cholesterosis [Unknown]
  - Hernia [Unknown]
  - Cholecystitis chronic [Unknown]
  - Vertigo [Unknown]
  - Haemorrhoids [Unknown]
  - Erectile dysfunction [Unknown]

NARRATIVE: CASE EVENT DATE: 201604
